FAERS Safety Report 25962031 (Version 3)
Quarter: 2025Q4

REPORT INFORMATION
  Report Type: Spontaneous
  Country: CO (occurrence: CO)
  Receive Date: 20251027
  Receipt Date: 20251202
  Transmission Date: 20260117
  Serious: Yes (Hospitalization)
  Sender: REGENERON
  Company Number: CO-BAYER-2025A140674

PATIENT
  Sex: Female

DRUGS (2)
  1. EYLEA [Suspect]
     Active Substance: AFLIBERCEPT
     Indication: Macular degeneration
     Dosage: 1 DF, Q1MON, SOLUTION FOR INJECTION, 40 MG/ML
     Route: 031
     Dates: start: 20231113, end: 20231113
  2. EYLEA [Suspect]
     Active Substance: AFLIBERCEPT
     Dosage: 40 MG, Q1MON, SOLUTION FOR INJECTION, 40 MG/ML
     Route: 031
     Dates: start: 20250821

REACTIONS (3)
  - Blood glucose increased [Unknown]
  - Haemoglobin decreased [Recovered/Resolved with Sequelae]
  - Haemoglobin decreased [Unknown]

NARRATIVE: CASE EVENT DATE: 20251014
